FAERS Safety Report 9191128 (Version 4)
Quarter: 2013Q3

REPORT INFORMATION
  Report Type: Report from Study
  Country: IN (occurrence: IN)
  Receive Date: 20130326
  Receipt Date: 20130722
  Transmission Date: 20140515
  Serious: Yes (Life-Threatening, Hospitalization)
  Sender: FDA-Public Use
  Company Number: IN-AMGEN-INDCT2013020479

PATIENT
  Age: 69 Year
  Sex: Male
  Weight: 56 kg

DRUGS (20)
  1. ETANERCEPT [Suspect]
     Indication: RHEUMATOID ARTHRITIS
     Dosage: 50 MG, QWK
     Route: 058
     Dates: start: 20121003
  2. WYSOLONE [Concomitant]
     Dosage: 5 MG (30 MG,1 IN 1D)
     Route: 048
     Dates: start: 20100118, end: 20100214
  3. WYSOLONE [Concomitant]
     Dosage: 25 MG, 1X/DAY
     Route: 048
     Dates: start: 20100215, end: 20100405
  4. WYSOLONE [Concomitant]
     Dosage: 20 MG, UNK
     Route: 048
     Dates: start: 20100406, end: 20111027
  5. WYSOLONE [Concomitant]
     Dosage: 12.5 MG, 1X/DAY
     Route: 048
     Dates: start: 20111028, end: 20111206
  6. WYSOLONE [Concomitant]
     Dosage: 7.5 MG, 1X/DAY
     Route: 048
     Dates: start: 20111207, end: 20120504
  7. WYSOLONE [Concomitant]
     Dosage: 5 MG, 1X/DAY
     Route: 048
     Dates: start: 20120505, end: 20130308
  8. WYSOLONE [Concomitant]
     Dosage: 40 MG, UNK
     Route: 048
     Dates: start: 20130309, end: 20130319
  9. WYSOLONE [Concomitant]
     Dosage: 30 MG, UNK
     Route: 048
     Dates: start: 20130320, end: 20130326
  10. WYSOLONE [Concomitant]
     Dosage: 20 MG, 1X/DAY
     Route: 048
     Dates: start: 20130327
  11. SHELCAL [Concomitant]
     Dosage: 500 MG, 1X/DAY
     Route: 048
     Dates: start: 20020322, end: 20051209
  12. SHELCAL [Concomitant]
     Dosage: 500 MG, 2X/DAY
     Route: 048
     Dates: start: 20051210
  13. OMEZ                               /00661201/ [Concomitant]
     Dosage: 20 MG, 1X/DAY
     Route: 048
     Dates: start: 20120515
  14. PARACETAMOL [Concomitant]
     Dosage: 650 MG, 2X/DAY
     Route: 048
     Dates: start: 20120918, end: 20130625
  15. LEFLUNOMIDE [Concomitant]
     Dosage: 20 MG, 1X/DAY
     Route: 048
     Dates: start: 20100118
  16. AZORAN                             /00001501/ [Concomitant]
     Dosage: 50 MG, 1X/DAY
     Route: 048
     Dates: start: 20100118
  17. ALENDRONATE SODIUM [Concomitant]
     Dosage: (70 MG,1 IN 1 WK)
     Route: 048
     Dates: start: 20101022, end: 20120507
  18. ZOLEDRONIC ACID [Concomitant]
     Dosage: 4 MG, SINGLE
     Route: 042
     Dates: start: 20120515, end: 20120516
  19. HYDROXYCHLOROQUINE SULFATE [Concomitant]
     Dosage: 200 MG, 2X/DAY
     Route: 048
     Dates: start: 20021227
  20. GLUCOSAMINE [Concomitant]
     Dosage: UNK

REACTIONS (1)
  - Endophthalmitis [Recovered/Resolved]
